FAERS Safety Report 15818871 (Version 1)
Quarter: 2019Q1

REPORT INFORMATION
  Report Type: Report from Study
  Country: TR (occurrence: TR)
  Receive Date: 20190114
  Receipt Date: 20190114
  Transmission Date: 20190417
  Serious: Yes (Congenital Anomaly, Other)
  Sender: FDA-Public Use
  Company Number: TR-SUN PHARMACEUTICAL INDUSTRIES LTD-2018RR-195833

PATIENT

DRUGS (5)
  1. LEVOFLOXACINE [Suspect]
     Active Substance: LEVOFLOXACIN
     Indication: SINUSITIS
     Dosage: 750 MILLIGRAM, DAILY, ON WEEKS 7-8
     Route: 064
  2. FLURBIPROFEN. [Suspect]
     Active Substance: FLURBIPROFEN
     Indication: SINUSITIS
     Dosage: 200 MILLIGRAM, DAILY
     Route: 064
  3. CETIRIZINE [Suspect]
     Active Substance: CETIRIZINE HYDROCHLORIDE
     Indication: SINUSITIS
     Dosage: 10 MILLIGRAM, DAILY, ON WEEKS 7-8
     Route: 064
  4. PSEUDOEPHEDRINE HYDROCHLORIDE. [Suspect]
     Active Substance: PSEUDOEPHEDRINE HYDROCHLORIDE
     Indication: SINUSITIS
     Dosage: 40 MILLIGRAM, DAILY
     Route: 065
  5. ESTRADIOL VALERATE/NORETHISTERONE [Suspect]
     Active Substance: ESTRADIOL\NORETHINDRONE ACETATE
     Indication: CONTRACEPTION
     Dosage: 5/50, ON WEEKS 4-5
     Route: 064

REACTIONS (2)
  - Foetal exposure during pregnancy [Unknown]
  - Cryptorchism [Unknown]
